FAERS Safety Report 12171046 (Version 1)
Quarter: 2016Q1

REPORT INFORMATION
  Report Type: Report from Study
  Country: BR (occurrence: BR)
  Receive Date: 20160311
  Receipt Date: 20160311
  Transmission Date: 20160526
  Serious: Yes (Other)
  Sender: FDA-Public Use
  Company Number: PHHY2016BR032190

PATIENT
  Sex: Female
  Weight: 56 kg

DRUGS (1)
  1. EXELON PATCH [Suspect]
     Active Substance: RIVASTIGMINE
     Indication: AMNESIA
     Dosage: PATCH 10 (CM)2
     Route: 062

REACTIONS (3)
  - Microcephaly [Unknown]
  - Weight increased [Unknown]
  - Post procedural complication [Recovering/Resolving]
